FAERS Safety Report 9617910 (Version 1)
Quarter: 2013Q4

REPORT INFORMATION
  Report Type: Spontaneous
  Country: GB (occurrence: GB)
  Receive Date: 20131011
  Receipt Date: 20131011
  Transmission Date: 20140711
  Serious: Yes (Disabling)
  Sender: FDA-Public Use
  Company Number: PHHY2013GB110388

PATIENT
  Age: 44 Year
  Sex: Female
  Weight: 78.92 kg

DRUGS (9)
  1. MIRTAZAPINE [Suspect]
     Indication: ANTIDEPRESSANT DRUG CLEARANCE DECREASED
     Dosage: AT NIGHT 2X 30MG NIGHTLY
     Route: 048
     Dates: start: 20120901
  2. MIRTAZAPINE [Suspect]
     Route: 048
  3. MIRTAZAPINE [Suspect]
     Route: 048
  4. MIRTAZAPINE [Suspect]
     Dosage: 15 MG, QD
     Route: 048
     Dates: end: 20130921
  5. NAPROXEN [Concomitant]
  6. OMEPRAZOLE [Concomitant]
  7. PARACETAMOL [Concomitant]
  8. TRAMADOL [Concomitant]
  9. CELLUVISC [Concomitant]

REACTIONS (8)
  - Cold sweat [Not Recovered/Not Resolved]
  - Hyperhidrosis [Not Recovered/Not Resolved]
  - Influenza like illness [Not Recovered/Not Resolved]
  - Mood swings [Not Recovered/Not Resolved]
  - Headache [Not Recovered/Not Resolved]
  - Insomnia [Not Recovered/Not Resolved]
  - Nausea [Not Recovered/Not Resolved]
  - Fatigue [Not Recovered/Not Resolved]
